FAERS Safety Report 5337160-4 (Version None)
Quarter: 2007Q2

REPORT INFORMATION
  Report Type: 
  Country: None (occurrence: None)
  Receive Date: 20070529
  Receipt Date: 20070515
  Transmission Date: 20071010
  Serious: Yes (Hospitalization, Other)
  Sender: FDA-Public Use
  Company Number: US-PFIZER INC-2007001813

PATIENT
  Sex: Male
  Weight: 122.5 kg

DRUGS (1)
  1. BEXTRA [Suspect]
     Indication: BACK DISORDER

REACTIONS (7)
  - ANXIETY [None]
  - CARDIOVASCULAR DISORDER [None]
  - CEREBROVASCULAR ACCIDENT [None]
  - DEEP VEIN THROMBOSIS [None]
  - DEPRESSION [None]
  - INSOMNIA [None]
  - PULMONARY EMBOLISM [None]
